FAERS Safety Report 8578359-3 (Version None)
Quarter: 2012Q3

REPORT INFORMATION
  Report Type: 
  Country: None (occurrence: None)
  Receive Date: 20120808
  Receipt Date: 20120730
  Transmission Date: 20120928
  Serious: Yes (Death)
  Sender: FDA-Public Use
  Company Number: US-SANOFI-AVENTIS-2012SA048514

PATIENT
  Age: 57 Year
  Sex: Male
  Weight: 123 kg

DRUGS (12)
  1. LISINOPRIL [Concomitant]
  2. FLONASE [Concomitant]
  3. ASPIRIN [Concomitant]
  4. AMLODIPINE BESYLATE [Concomitant]
  5. METOPROLOL TARTRATE [Concomitant]
  6. ZANTAC [Concomitant]
  7. ANUCORT-HC [Concomitant]
  8. TADALAFIL [Concomitant]
  9. PROAIR HFA [Concomitant]
     Dosage: DOSE:2 PUFF(S)
  10. LASIX [Concomitant]
  11. PLAVIX [Suspect]
     Route: 048
  12. ALDACTONE [Concomitant]

REACTIONS (1)
  - DEATH [None]
